FAERS Safety Report 8477466 (Version 4)
Quarter: 2012Q4

REPORT INFORMATION
  Report Type: 
  Country: US (occurrence: US)
  Receive Date: 20120327
  Receipt Date: 20120924
  Transmission Date: 20130627
  Serious: Yes (Other)
  Sender: FDA-Public Use
  Company Number: US-US-EMD SERONO, INC.-7120692

PATIENT
  Age: 58 None
  Sex: Female
  Weight: 64 kg

DRUGS (4)
  1. REBIF [Suspect]
     Indication: MULTIPLE SCLEROSIS
     Route: 058
     Dates: start: 20070910, end: 201208
  2. FOSAMAX [Concomitant]
     Indication: OSTEOPOROSIS
  3. XANAX [Concomitant]
     Indication: ANXIOLYTIC THERAPY
  4. ATIVAN [Concomitant]
     Indication: ANXIETY

REACTIONS (13)
  - Hepatic mass [Not Recovered/Not Resolved]
  - Nephrolithiasis [Not Recovered/Not Resolved]
  - Monarthritis [Unknown]
  - Hepatic cyst [Not Recovered/Not Resolved]
  - Renal cyst [Not Recovered/Not Resolved]
  - Restless legs syndrome [Not Recovered/Not Resolved]
  - Insomnia [Not Recovered/Not Resolved]
  - Eye pain [Unknown]
  - Ear pain [Unknown]
  - Lymphadenopathy [Unknown]
  - Emotional distress [Unknown]
  - Depression [Unknown]
  - Injection site pain [Not Recovered/Not Resolved]
